FAERS Safety Report 5072339-0 (Version None)
Quarter: 2006Q3

REPORT INFORMATION
  Report Type: 
  Country: None (occurrence: None)
  Receive Date: 20060807
  Receipt Date: 20060706
  Transmission Date: 20061208
  Serious: Yes (Disabling)
  Sender: FDA-Public Use
  Company Number: 2006UW14152

PATIENT
  Age: 54 Year
  Sex: Male

DRUGS (8)
  1. SEROQUEL [Suspect]
     Route: 048
  2. LITHOBID [Concomitant]
  3. EFFEXOR XR [Concomitant]
  4. LEXAPRO [Concomitant]
  5. METFORMIN [Concomitant]
  6. PROSCAR [Concomitant]
  7. HYDROCHLOROTHIAZIDE [Concomitant]
  8. TRAZODONE HCL [Concomitant]
     Dosage: PRN

REACTIONS (1)
  - RESTLESS LEGS SYNDROME [None]
